FAERS Safety Report 21393276 (Version 2)
Quarter: 2022Q4

REPORT INFORMATION
  Report Type: Report from Study
  Country: JP (occurrence: JP)
  Receive Date: 20220929
  Receipt Date: 20221010
  Transmission Date: 20230113
  Serious: Yes (Hospitalization)
  Sender: FDA-Public Use
  Company Number: JP-REGENERON PHARMACEUTICALS, INC.-2022-124569

PATIENT
  Age: 63 Year
  Sex: Male

DRUGS (4)
  1. CEMIPLIMAB [Suspect]
     Active Substance: CEMIPLIMAB
     Indication: Lung squamous cell carcinoma stage IV
     Dosage: 350 MG, Q3W
     Route: 042
     Dates: start: 20220809, end: 20220830
  2. PEMETREXED [Suspect]
     Active Substance: PEMETREXED
     Indication: Lung squamous cell carcinoma stage IV
     Dosage: 500 MG/M2, Q3W
     Route: 042
     Dates: start: 20220809, end: 20220830
  3. CARBOPLATIN [Suspect]
     Active Substance: CARBOPLATIN
     Indication: Lung squamous cell carcinoma stage IV
     Dosage: AUC OF 5 OR 6 MG/ML/MINUTE, Q3W
     Route: 042
     Dates: start: 20220809, end: 20220830
  4. ACETAMINOPHEN [Concomitant]
     Active Substance: ACETAMINOPHEN
     Indication: Non-small cell lung cancer
     Dosage: 400 MG, AS NECESSARY
     Route: 048
     Dates: start: 20220805

REACTIONS (1)
  - Herpes zoster [Recovered/Resolved with Sequelae]

NARRATIVE: CASE EVENT DATE: 20220920
